FAERS Safety Report 12157331 (Version 1)
Quarter: 2016Q1

REPORT INFORMATION
  Report Type: Report from Study
  Country: US (occurrence: US)
  Receive Date: 20160308
  Receipt Date: 20160308
  Transmission Date: 20160526
  Serious: Yes (Hospitalization)
  Sender: FDA-Public Use
  Company Number: US-BIOGEN-2015BI115498

PATIENT
  Age: 40 Year
  Sex: Female

DRUGS (2)
  1. TECFIDERA [Suspect]
     Active Substance: DIMETHYL FUMARATE
     Route: 048
     Dates: start: 201508
  2. TECFIDERA [Suspect]
     Active Substance: DIMETHYL FUMARATE
     Indication: MULTIPLE SCLEROSIS
     Route: 048
     Dates: start: 201507, end: 201508

REACTIONS (6)
  - Skin burning sensation [Unknown]
  - Dizziness [Unknown]
  - Headache [Unknown]
  - Disturbance in attention [Unknown]
  - Multiple sclerosis relapse [Unknown]
  - Blindness [Unknown]

NARRATIVE: CASE EVENT DATE: 201507
